FAERS Safety Report 24459323 (Version 1)
Quarter: 2024Q4

REPORT INFORMATION
  Report Type: Spontaneous
  Country: US (occurrence: US)
  Receive Date: 20241018
  Receipt Date: 20241018
  Transmission Date: 20250115
  Serious: Yes (Other)
  Sender: GLAXOSMITHKLINE
  Company Number: US-GSKCCFUS-Case-02126005_AE-117277

PATIENT

DRUGS (1)
  1. IMITREX [Suspect]
     Active Substance: SUMATRIPTAN SUCCINATE
     Indication: Migraine
     Dosage: UNK
     Route: 042
     Dates: start: 20240829

REACTIONS (10)
  - Cerebral vasoconstriction [Unknown]
  - Depressed level of consciousness [Unknown]
  - Balance disorder [Unknown]
  - Migraine [Unknown]
  - Cognitive disorder [Unknown]
  - Drug hypersensitivity [Unknown]
  - Vascular pain [Unknown]
  - Swelling face [Unknown]
  - Swollen tongue [Unknown]
  - Incorrect route of product administration [Unknown]
